FAERS Safety Report 19945308 (Version 1)
Quarter: 2021Q4

REPORT INFORMATION
  Report Type: Spontaneous
  Country: US (occurrence: US)
  Receive Date: 20211011
  Receipt Date: 20211011
  Transmission Date: 20220303
  Serious: No
  Sender: FDA-Public Use
  Company Number: US-CELGENE-USA-20211001097

PATIENT
  Sex: Female
  Weight: 66.74 kg

DRUGS (1)
  1. REVLIMID [Suspect]
     Active Substance: LENALIDOMIDE
     Indication: Plasma cell myeloma
     Dosage: 25 MILLIGRAM
     Route: 048
     Dates: start: 20210801

REACTIONS (6)
  - Injection site erythema [Unknown]
  - Arthritis [Unknown]
  - Memory impairment [Unknown]
  - Eye disorder [Unknown]
  - Dizziness [Unknown]
  - Rash pruritic [Unknown]

NARRATIVE: CASE EVENT DATE: 20210101
